FAERS Safety Report 7163602-8 (Version None)
Quarter: 2010Q4

REPORT INFORMATION
  Report Type: 
  Country: None (occurrence: None)
  Receive Date: 20101215
  Receipt Date: 20100517
  Transmission Date: 20110411
  Serious: Yes (Hospitalization)
  Sender: FDA-Public Use
  Company Number: FR-PFIZER INC-2010061289

PATIENT
  Age: 82 Year
  Sex: Female

DRUGS (3)
  1. LYRICA [Suspect]
     Indication: POST HERPETIC NEURALGIA
     Dosage: 100 MG, 1X/DAY
     Route: 048
     Dates: start: 20091001, end: 20100125
  2. RIVOTRIL [Suspect]
     Indication: NEURALGIA
     Dosage: 0.5 MG, 1X/DAY
     Route: 048
     Dates: start: 20070101, end: 20100125
  3. APROVEL [Concomitant]
     Indication: HYPERTENSION
     Dosage: 300 MG, 1X/DAY
     Route: 048
     Dates: start: 20070101

REACTIONS (4)
  - ABNORMAL BEHAVIOUR [None]
  - AMNESTIC DISORDER [None]
  - COGNITIVE DISORDER [None]
  - DISORIENTATION [None]
